FAERS Safety Report 6853077-8 (Version None)
Quarter: 2010Q3

REPORT INFORMATION
  Report Type: 
  Country: None (occurrence: None)
  Receive Date: 20100717
  Receipt Date: 20071205
  Transmission Date: 20110219
  Serious: No
  Sender: FDA-Public Use
  Company Number: US-PFIZER INC-2007101725

PATIENT
  Sex: Male

DRUGS (3)
  1. CHANTIX [Suspect]
     Indication: SMOKING CESSATION THERAPY
     Dates: start: 20071001, end: 20071125
  2. CLONAZEPAM [Concomitant]
     Indication: AGORAPHOBIA
  3. ADVIL LIQUI-GELS [Concomitant]

REACTIONS (8)
  - ABDOMINAL DISCOMFORT [None]
  - ABNORMAL DREAMS [None]
  - ANIMAL BITE [None]
  - DRUG INEFFECTIVE [None]
  - MIDDLE INSOMNIA [None]
  - PAIN [None]
  - STRESS [None]
  - WEIGHT INCREASED [None]
